FAERS Safety Report 9752209 (Version 2)
Quarter: 2013Q4

REPORT INFORMATION
  Report Type: Spontaneous
  Country: DE (occurrence: None)
  Receive Date: 20131211
  Receipt Date: 20131211
  Transmission Date: 20140711
  Serious: Yes (Hospitalization)
  Sender: FDA-Public Use
  Company Number: 7254511

PATIENT
  Age: 78 Year
  Sex: Male

DRUGS (4)
  1. L-THYROXIN [Suspect]
     Indication: PRODUCT USED FOR UNKNOWN INDICATION
     Route: 048
     Dates: start: 20120522, end: 20120524
  2. LAMOTRIGINE (LAMOTRIGINE) (LAMOTRIGINE) [Concomitant]
  3. BUPROPION (BUPROPION) (BUPROPION) [Concomitant]
  4. ARIPIPRAZOLE (ARIPIPRAZOLE) (ARIPIPRAZOLE) [Concomitant]

REACTIONS (4)
  - Syncope [None]
  - Dysarthria [None]
  - Muscular weakness [None]
  - Loss of consciousness [None]
